FAERS Safety Report 9508903 (Version 2)
Quarter: 2013Q3

REPORT INFORMATION
  Report Type: Spontaneous
  Country: US (occurrence: US)
  Receive Date: 20130909
  Receipt Date: 20130909
  Transmission Date: 20140515
  Serious: Yes (Other)
  Sender: FDA-Public Use
  Company Number: US-BRISTOL-MYERS SQUIBB COMPANY-19106228

PATIENT
  Age: 45 Year
  Sex: Female
  Weight: 95.24 kg

DRUGS (8)
  1. ABILIFY INJECTION [Suspect]
     Indication: SCHIZOPHRENIA
     Route: 065
     Dates: start: 20130617, end: 201307
  2. OXYCODONE HCL [Concomitant]
     Indication: PAIN
  3. GABAPENTIN [Concomitant]
  4. PRAVASTATIN SODIUM [Concomitant]
  5. LOSARTAN [Concomitant]
  6. FLEXERIL [Concomitant]
  7. ALPRAZOLAM [Concomitant]
  8. DEPO-PROVERA [Concomitant]

REACTIONS (6)
  - Blood glucose increased [Unknown]
  - Headache [Recovering/Resolving]
  - Myalgia [Recovering/Resolving]
  - Glycosylated haemoglobin increased [Unknown]
  - Dry mouth [Unknown]
  - Tongue disorder [Unknown]
